FAERS Safety Report 16656384 (Version 1)
Quarter: 2019Q3

REPORT INFORMATION
  Report Type: Report from Study
  Country: NO (occurrence: NO)
  Receive Date: 20190801
  Receipt Date: 20190801
  Transmission Date: 20191004
  Serious: Yes (Hospitalization)
  Sender: FDA-Public Use
  Company Number: NO-PACIRA-201400050

PATIENT

DRUGS (4)
  1. ONDANSETRON HCL [Suspect]
     Active Substance: ONDANSETRON HYDROCHLORIDE
     Indication: DIFFUSE LARGE B-CELL LYMPHOMA
     Dosage: UNK UNK, UNK, FREQUENCY : UNK
     Route: 048
     Dates: start: 20140114
  2. VINCRISTINE [Suspect]
     Active Substance: VINCRISTINE
     Indication: DIFFUSE LARGE B-CELL LYMPHOMA
     Dosage: UNK UNK, UNK, FREQUENCY : UNK
     Route: 042
  3. DEPOCYT [Suspect]
     Active Substance: CYTARABINE
     Indication: DIFFUSE LARGE B-CELL LYMPHOMA
     Dosage: PER PROTOCOL, 50 MG ADMINISTERED ON CYCLES ONE, THREE AND FIVE (ONE DOSE PER CYCLE), FREQUENCY : 3X
     Route: 037
     Dates: start: 20140114, end: 20140316
  4. DEPOCYT [Suspect]
     Active Substance: CYTARABINE
     Indication: DIFFUSE LARGE B-CELL LYMPHOMA

REACTIONS (2)
  - Arachnoiditis [Recovered/Resolved with Sequelae]
  - Constipation [Not Recovered/Not Resolved]

NARRATIVE: CASE EVENT DATE: 20140404
